FAERS Safety Report 6184475-6 (Version None)
Quarter: 2009Q2

REPORT INFORMATION
  Report Type: 
  Country: None (occurrence: None)
  Receive Date: 20090508
  Receipt Date: 20090430
  Transmission Date: 20091009
  Serious: Yes (Hospitalization)
  Sender: FDA-Public Use
  Company Number: US-PFIZER INC-2009194760

PATIENT
  Sex: Female
  Weight: 85.261 kg

DRUGS (13)
  1. NAPROXEN [Suspect]
     Indication: OSTEOARTHRITIS
     Dosage: UNK
     Route: 048
     Dates: start: 20070821
  2. BLINDED *PLACEBO [Suspect]
     Indication: OSTEOARTHRITIS
     Dosage: UNK
     Route: 048
     Dates: start: 20070821
  3. BLINDED CELECOXIB [Suspect]
     Indication: OSTEOARTHRITIS
     Dosage: UNK
     Route: 048
     Dates: start: 20070821
  4. IBUPROFEN [Suspect]
     Indication: OSTEOARTHRITIS
     Dosage: UNK
     Route: 048
     Dates: start: 20070821
  5. NAPROXEN [Suspect]
     Dosage: UNK
     Route: 048
     Dates: start: 20070821
  6. DIOVAN HCT [Concomitant]
     Dosage: UNK
     Route: 048
     Dates: start: 20070212
  7. PAXIL [Concomitant]
     Dosage: UNK
     Route: 048
     Dates: start: 19990118
  8. GABAPENTIN [Concomitant]
     Dosage: UNK
     Route: 048
     Dates: start: 20040713
  9. TRAMADOL HYDROCHLORIDE [Concomitant]
     Dosage: UNK
     Route: 048
     Dates: start: 20031104
  10. LIDOCAINE [Concomitant]
     Dosage: UNK
     Route: 003
     Dates: start: 20061108
  11. VICODIN ES [Concomitant]
     Dosage: UNK
     Route: 048
     Dates: start: 20030626
  12. HYDROCHLOROTHIAZIDE [Concomitant]
     Dosage: UNK
     Route: 048
     Dates: start: 20070607
  13. LOVASTATIN [Concomitant]
     Dosage: UNK
     Route: 048
     Dates: start: 20070607

REACTIONS (1)
  - STRESS URINARY INCONTINENCE [None]
